FAERS Safety Report 12564263 (Version 1)
Quarter: 2016Q3

REPORT INFORMATION
  Report Type: Spontaneous
  Country: US (occurrence: None)
  Receive Date: 20160715
  Receipt Date: 20160715
  Transmission Date: 20161109
  Serious: No
  Sender: FDA-Public Use
  Company Number: None

PATIENT
  Age: 44 Year
  Sex: Male

DRUGS (15)
  1. PERTZYE [Suspect]
     Active Substance: PANCRELIPASE AMYLASE\PANCRELIPASE LIPASE\PANCRELIPASE PROTEASE
     Indication: CYSTIC FIBROSIS
     Dosage: 2-8 CS UP TO 6X/DAY PO
     Route: 048
     Dates: start: 20160601, end: 20160628
  2. ADVAIR HFA [Concomitant]
     Active Substance: FLUTICASONE PROPIONATE\SALMETEROL XINAFOATE
  3. PULMOZYME [Concomitant]
     Active Substance: DORNASE ALFA
  4. COLACE [Concomitant]
     Active Substance: DOCUSATE SODIUM
  5. VITAMIN D [Concomitant]
     Active Substance: CHOLECALCIFEROL
  6. CAYSTON [Concomitant]
     Active Substance: AZTREONAM
  7. FLUTICASONE [Concomitant]
     Active Substance: FLUTICASONE\FLUTICASONE PROPIONATE
  8. INEZOLID [Concomitant]
  9. BETHKIS [Concomitant]
     Active Substance: TOBRAMYCIN
  10. PROVENTIL [Concomitant]
     Active Substance: ALBUTEROL
  11. SOD CHL [Concomitant]
  12. AQUADEKS [Concomitant]
     Active Substance: MINERALS\VITAMINS
  13. MEPHYTON [Concomitant]
     Active Substance: PHYTONADIONE
  14. LEVOTI [Concomitant]
  15. ALBUTE [Concomitant]

REACTIONS (1)
  - Drug effect decreased [None]
